FAERS Safety Report 7498988-8 (Version None)
Quarter: 2011Q2

REPORT INFORMATION
  Report Type: 
  Country: None (occurrence: None)
  Receive Date: 20110516
  Receipt Date: 20110408
  Transmission Date: 20111010
  Serious: Yes (Other)
  Sender: FDA-Public Use
  Company Number: 031128

PATIENT
  Age: 84 Year
  Sex: Female

DRUGS (2)
  1. CROMOLYN SODIUM [Suspect]
     Indication: HYPERSENSITIVITY
     Dosage: (1 SPRAY EACH NOSTRIL NASAL)
     Route: 045
  2. XYZAL [Suspect]

REACTIONS (5)
  - BLOOD PRESSURE INCREASED [None]
  - DRUG INTERACTION [None]
  - PRURITUS GENERALISED [None]
  - DYSPNOEA [None]
  - FEELING ABNORMAL [None]
